FAERS Safety Report 22342047 (Version 3)
Quarter: 2024Q2

REPORT INFORMATION
  Report Type: Spontaneous
  Country: ES (occurrence: ES)
  Receive Date: 20230518
  Receipt Date: 20240409
  Transmission Date: 20240716
  Serious: Yes (Death, Other)
  Sender: FDA-Public Use
  Company Number: ES-BAXTER-2023BAX021834

PATIENT
  Age: 71 Year
  Sex: Female

DRUGS (17)
  1. DOXORUBICIN [Suspect]
     Active Substance: DOXORUBICIN
     Indication: Diffuse large B-cell lymphoma stage IV
     Dosage: UNK, CYCLIC, 1ST LINE, 6 CYCLES AS A PART OF RCHOP REGIMEN, DOSAGE FORM: POWDER FOR INFUSION/INJECTI
     Route: 065
  2. CYCLOPHOSPHAMIDE [Suspect]
     Active Substance: CYCLOPHOSPHAMIDE
     Indication: Diffuse large B-cell lymphoma stage IV
     Dosage: UNK, UNK,CYCLIC, 1ST LINE, 6 CYCLES AS A PART OF RCHOP REGIMEN
     Route: 065
  3. CYCLOPHOSPHAMIDE [Suspect]
     Active Substance: CYCLOPHOSPHAMIDE
     Dosage: UNK UNK, CYCLIC (2ND LINE, 8 CYCLES AS A PART OF EC REGIMEN)
     Route: 065
  4. IMBRUVICA [Suspect]
     Active Substance: IBRUTINIB
     Indication: Diffuse large B-cell lymphoma stage IV
     Dosage: UNK UNK, CYCLIC (6TH LINE, 4 CYCLES)
     Route: 048
  5. EPIRUBICIN [Suspect]
     Active Substance: EPIRUBICIN
     Indication: Diffuse large B-cell lymphoma stage IV
     Dosage: UNK, CYCLIC, 2ND LINE, 8 CYCLES AS A PART OF EC REGIMEN
     Route: 065
  6. METHOTREXATE [Suspect]
     Active Substance: METHOTREXATE
     Indication: Diffuse large B-cell lymphoma stage IV
     Dosage: UNK,UNK, CYCLIC, 5TH LINE AS A PART OF R-MTX-ARA-C REGIMEN
     Route: 065
  7. CYTARABINE [Suspect]
     Active Substance: CYTARABINE
     Indication: Diffuse large B-cell lymphoma stage IV
     Dosage: UNK,UNK, CYCLIC, 5TH LINE AS A PART OF R-MTX-ARA-C REGIMEN
     Route: 065
  8. TRUXIMA [Suspect]
     Active Substance: RITUXIMAB-ABBS
     Indication: Diffuse large B-cell lymphoma stage IV
     Dosage: UNK, CYCLIC, 1ST LINE, 6 CYCLES AS A PART OF RCHOP REGIMEN
     Route: 065
  9. TRUXIMA [Suspect]
     Active Substance: RITUXIMAB-ABBS
     Dosage: UNK UNK, CYCLIC (5TH LINE AS A PART OF R-MTX-ARA-C)
     Route: 065
  10. TRUXIMA [Suspect]
     Active Substance: RITUXIMAB-ABBS
     Dosage: UNK UNK, CYCLIC (3RD LINE, 1 CYCLE, BRIDGE THERAPY)
     Route: 065
  11. DEXAMETHASONE [Suspect]
     Active Substance: DEXAMETHASONE
     Indication: Diffuse large B-cell lymphoma stage IV
     Dosage: UNK, UNK, UNKNOWN FREQ
     Route: 065
  12. PREDNISONE [Suspect]
     Active Substance: PREDNISONE
     Indication: Diffuse large B-cell lymphoma stage IV
     Dosage: UNK,UNK, UNKNOWN FREQ.(1ST LINE, 6 CYCLES AS A PART OF RCHOP REGIMEN), DOSAGE FORM: SOLUTION
     Route: 065
  13. VINCRISTINE SULFATE [Suspect]
     Active Substance: VINCRISTINE SULFATE
     Indication: Diffuse large B-cell lymphoma
     Dosage: UNK, UNK,UNKNOWN FREQ, 1ST LINE, 6 CYCLES AS A PART OF RCHOP REGIMEN
     Route: 065
  14. VINCRISTINE SULFATE [Suspect]
     Active Substance: VINCRISTINE SULFATE
     Indication: Diffuse large B-cell lymphoma stage IV
  15. TEMODAL [Suspect]
     Active Substance: TEMOZOLOMIDE
     Indication: Diffuse large B-cell lymphoma stage IV
     Dosage: UNK UNK, CYCLIC (6TH LINE, 4 CYCLES)
     Route: 065
  16. MOSUNETUZUMAB [Suspect]
     Active Substance: MOSUNETUZUMAB
     Indication: Diffuse large B-cell lymphoma stage IV
     Dosage: UNK,UNK, CYCLIC, 2ND LINE, 8 CYCLES
     Route: 065
  17. BENDAMUSTINE HYDROCHLORIDE [Suspect]
     Active Substance: BENDAMUSTINE HYDROCHLORIDE
     Indication: Diffuse large B-cell lymphoma stage IV
     Dosage: UNK UNK, CYCLIC (3RD LINE, 1 CYCLE, BRIDGE THERAPY)
     Route: 042

REACTIONS (12)
  - Death [Fatal]
  - Malignant neoplasm progression [Recovered/Resolved]
  - Vasogenic cerebral oedema [Recovered/Resolved]
  - Neurological symptom [Unknown]
  - Diffuse large B-cell lymphoma recurrent [Unknown]
  - Disease progression [Recovered/Resolved]
  - Vasogenic cerebral oedema [Not Recovered/Not Resolved]
  - Malignant neoplasm progression [Recovered/Resolved]
  - Diffuse large B-cell lymphoma [Not Recovered/Not Resolved]
  - Diffuse large B-cell lymphoma [Recovered/Resolved]
  - Disorientation [Unknown]
  - Therapy partial responder [Unknown]
